FAERS Safety Report 4300855-5 (Version None)
Quarter: 2004Q1

REPORT INFORMATION
  Report Type: 
  Country: None (occurrence: None)
  Receive Date: 20040218
  Receipt Date: 20031021
  Transmission Date: 20041129
  Serious: No
  Sender: FDA-Public Use
  Company Number: 2003-07-1162

PATIENT
  Age: 55 Year
  Sex: Male

DRUGS (4)
  1. PEG-INTRON [Suspect]
     Indication: HEPATITIS C
     Dosage: 150-75 MCG QW SUBCUTANEOUS
     Route: 058
     Dates: start: 20030606, end: 20030717
  2. PEG-INTRON [Suspect]
     Indication: HEPATITIS C
     Dosage: 75 MCG QW SUBCUTANEOUS
     Route: 058
     Dates: start: 20030711, end: 20030717
  3. REBETOL [Suspect]
     Indication: HEPATITIS C
     Dosage: 1400 MG QD ORAL
     Route: 048
     Dates: start: 20030606, end: 20030710
  4. REBETOL [Suspect]
     Indication: HEPATITIS C
     Dosage: 800 MG QD ORAL
     Route: 048
     Dates: start: 20030717, end: 20030717

REACTIONS (2)
  - BLOOD CREATININE INCREASED [None]
  - BLOOD UREA INCREASED [None]
